FAERS Safety Report 8924693 (Version 2)
Quarter: 2013Q1

REPORT INFORMATION
  Report Type: Spontaneous
  Country: US (occurrence: None)
  Receive Date: 20121116
  Receipt Date: 20121203
  Transmission Date: 20140127
  Serious: Yes (Other)
  Sender: FDA-Public Use
  Company Number: 2012-7716

PATIENT
  Age: 9 Year
  Sex: Female
  Weight: 22.3 kg

DRUGS (3)
  1. INCRELEX [Suspect]
     Dates: start: 201110, end: 201205
  2. TEV-TROPIN [Suspect]
     Dates: start: 201205, end: 20121108
  3. VITAMIN D (ERGOCALCIFEROL) [Concomitant]

REACTIONS (3)
  - Cardiac hypertrophy [None]
  - Mitral valve disease [None]
  - Visual acuity tests abnormal [None]
